FAERS Safety Report 4688272-X (Version None)
Quarter: 2005Q2

REPORT INFORMATION
  Report Type: 
  Country: None (occurrence: None)
  Receive Date: 20050609
  Receipt Date: 20050527
  Transmission Date: 20051028
  Serious: Yes (Death, Life-Threatening, Other)
  Sender: FDA-Public Use
  Company Number: 2005080607

PATIENT
  Age: 85 Year
  Sex: Male

DRUGS (2)
  1. CELEBREX [Suspect]
     Indication: OSTEOARTHRITIS
     Dosage: ORAL
     Route: 048
  2. ACETYLSALICYLATE LYSINE (ACETYLSALICYLATE LYSINE) [Concomitant]

REACTIONS (7)
  - ANAEMIA [None]
  - GASTRIC ULCER [None]
  - GASTROINTESTINAL NECROSIS [None]
  - LUNG DISORDER [None]
  - MELAENA [None]
  - PYREXIA [None]
  - RENAL FAILURE [None]
